FAERS Safety Report 25665298 (Version 1)
Quarter: 2025Q3

REPORT INFORMATION
  Report Type: Spontaneous
  Country: JP (occurrence: JP)
  Receive Date: 20250811
  Receipt Date: 20250811
  Transmission Date: 20251020
  Serious: Yes (Hospitalization)
  Sender: OTSUKA
  Company Number: JP-MMM-Otsuka-H41ECFXV

PATIENT
  Age: 91 Year
  Sex: Female
  Weight: 57 kg

DRUGS (1)
  1. SAMSCA [Suspect]
     Active Substance: TOLVAPTAN
     Indication: Oedema peripheral
     Dosage: 1 TABLET (7.5 MG) X 1 TIME/DAY
     Route: 048
     Dates: start: 20250226, end: 20250228

REACTIONS (2)
  - Electrolyte imbalance [Recovered/Resolved]
  - Hypernatraemia [Recovered/Resolved]

NARRATIVE: CASE EVENT DATE: 20250301
